FAERS Safety Report 6785793-0 (Version None)
Quarter: 2010Q2

REPORT INFORMATION
  Report Type: 
  Country: None (occurrence: None)
  Receive Date: 20100622
  Receipt Date: 20100622
  Transmission Date: 20101027
  Serious: Yes (Hospitalization)
  Sender: FDA-Public Use
  Company Number: None

PATIENT
  Age: 33 Year
  Sex: Male
  Weight: 107.5 kg

DRUGS (12)
  1. VANCOMYCIN [Suspect]
     Indication: STAPHYLOCOCCAL INFECTION
     Dosage: 1250MG Q8HR IV RECENT, EMPYEMA
     Route: 042
  2. CONTRAST IV [Suspect]
     Indication: EMPYEMA
     Dosage: OTO IV ONCE, PTA
     Route: 042
  3. LISINOPRIL [Concomitant]
  4. LANTUS [Concomitant]
  5. GLUCOTROL [Concomitant]
  6. HUMALOG [Concomitant]
  7. LORTAB [Concomitant]
  8. MOTRIN [Concomitant]
  9. ROCEPHIN [Concomitant]
  10. AZITHROMYCIN [Concomitant]
  11. DILAUDID [Concomitant]
  12. ZOFRAN [Concomitant]

REACTIONS (3)
  - DIALYSIS [None]
  - RENAL FAILURE ACUTE [None]
  - THERAPEUTIC AGENT TOXICITY [None]
